FAERS Safety Report 6537805-7 (Version None)
Quarter: 2010Q1

REPORT INFORMATION
  Report Type: 
  Country: None (occurrence: None)
  Receive Date: 20100114
  Receipt Date: 20100106
  Transmission Date: 20100710
  Serious: Yes (Other)
  Sender: FDA-Public Use
  Company Number: CL-PFIZER INC-2010001932

PATIENT
  Age: 65 Year
  Sex: Female

DRUGS (1)
  1. CELEBRA [Suspect]
     Indication: ARTHRALGIA

REACTIONS (1)
  - CHRONIC OBSTRUCTIVE PULMONARY DISEASE [None]
